FAERS Safety Report 11182937 (Version 1)
Quarter: 2015Q2

REPORT INFORMATION
  Report Type: Report from Study
  Country: FR (occurrence: FR)
  Receive Date: 20150611
  Receipt Date: 20150611
  Transmission Date: 20150821
  Serious: Yes (Hospitalization, Other)
  Sender: FDA-Public Use
  Company Number: FR-JAZZ-JPI-P-001172

PATIENT
  Age: 63 Year
  Sex: Male
  Weight: 75 kg

DRUGS (22)
  1. XYREM [Suspect]
     Active Substance: SODIUM OXYBATE
     Dosage: 4.4 G, BID
     Route: 048
     Dates: start: 20071026, end: 2007
  2. XYREM [Suspect]
     Active Substance: SODIUM OXYBATE
     Dosage: 4.5 G, BID
     Route: 048
     Dates: start: 2007
  3. CLOPIDOGREL [Concomitant]
     Active Substance: CLOPIDOGREL BISULFATE
     Indication: PRODUCT USED FOR UNKNOWN INDICATION
     Dosage: 75 MG, QD
  4. XYREM [Suspect]
     Active Substance: SODIUM OXYBATE
     Indication: CATAPLEXY
     Dosage: 2.25 G, BID
     Route: 048
     Dates: start: 20070218, end: 20070305
  5. IMIPRAMINE HYDROCHLORIDE. [Suspect]
     Active Substance: IMIPRAMINE HYDROCHLORIDE
     Indication: CATAPLEXY
  6. MODAFINIL. [Concomitant]
     Active Substance: MODAFINIL
     Indication: NARCOLEPSY
     Dosage: 500 MG QD (3 TABLETS/AM + 2 TABLETS/NOON)
  7. TERBINAFINE [Concomitant]
     Active Substance: TERBINAFINE
     Indication: FUNGAL INFECTION
     Dosage: 1 DF SINGLE (IN AM)
     Dates: start: 200806
  8. XYREM [Suspect]
     Active Substance: SODIUM OXYBATE
     Indication: NARCOLEPSY
     Dosage: 4.5 G, BID
     Route: 048
     Dates: start: 2005
  9. XYREM [Suspect]
     Active Substance: SODIUM OXYBATE
     Dosage: 3.0 G, BID
     Route: 048
     Dates: start: 20070306, end: 20070315
  10. MODAFINIL. [Concomitant]
     Active Substance: MODAFINIL
     Dosage: 400 MG QD (3 TABLETS/AM + 1 TABLET /NOON)
     Route: 048
  11. CEFIXIME ACTAVIS [Concomitant]
     Indication: BRONCHITIS
     Dosage: 200 MG, BID
     Dates: start: 20111206, end: 20111214
  12. CLOMIPRAMINE HYDROCHLORIDE. [Concomitant]
     Active Substance: CLOMIPRAMINE HYDROCHLORIDE
     Indication: NARCOLEPSY
     Dosage: 75 MG, SINGLE
     Route: 048
  13. ROSUVASTATIN [Concomitant]
     Active Substance: ROSUVASTATIN
     Indication: CORONARY ARTERY DISEASE
     Dates: start: 201107, end: 20111229
  14. ESOMEPRAZOLE MAGNESIUM. [Concomitant]
     Active Substance: ESOMEPRAZOLE MAGNESIUM
     Indication: PRODUCT USED FOR UNKNOWN INDICATION
  15. IMIPRAMINE HYDROCHLORIDE. [Suspect]
     Active Substance: IMIPRAMINE HYDROCHLORIDE
     Indication: NARCOLEPSY
     Route: 048
  16. CLOMIPRAMINE HYDROCHLORIDE. [Concomitant]
     Active Substance: CLOMIPRAMINE HYDROCHLORIDE
     Indication: CATAPLEXY
     Dosage: 150 MG QD (TWICE NIGHTLY)
  17. DEXTROMETHORPHAN HYDROBROMIDE. [Concomitant]
     Active Substance: DEXTROMETHORPHAN HYDROBROMIDE
     Indication: BRONCHITIS
     Dosage: 300 MG, TID
     Dates: start: 20111206, end: 20111214
  18. XYREM [Suspect]
     Active Substance: SODIUM OXYBATE
     Dosage: 4.5 G, BID
     Route: 048
     Dates: start: 20070316, end: 20071025
  19. ATENOLOL. [Concomitant]
     Active Substance: ATENOLOL
     Indication: PRODUCT USED FOR UNKNOWN INDICATION
  20. MODAFINIL. [Concomitant]
     Active Substance: MODAFINIL
     Indication: CATAPLEXY
     Dosage: DF QD (3 TABLETS/AM + 1 TABLET/NOON)
     Route: 048
  21. ACETYLSALICYLIC ACID [Concomitant]
     Active Substance: ASPIRIN
     Indication: PRODUCT USED FOR UNKNOWN INDICATION
     Dosage: 75 MG, QD
  22. TUAMINOHEPTANE SULFATE [Concomitant]
     Active Substance: TUAMINOHEPTANE SULFATE
     Indication: BRONCHITIS
     Dosage: 3 DF, TID
     Dates: start: 20111206, end: 20111214

REACTIONS (30)
  - Myocardial infarction [Recovered/Resolved]
  - Sensory disturbance [Recovered/Resolved]
  - Pain in extremity [Recovered/Resolved]
  - Phlebitis [Recovered/Resolved]
  - Back pain [Recovered/Resolved]
  - Bone graft [Unknown]
  - Dry mouth [Recovered/Resolved]
  - Weight decreased [Unknown]
  - Hypercholesterolaemia [Recovered/Resolved]
  - Aphonia [Recovered/Resolved]
  - Pyrexia [Unknown]
  - Fungal infection [Recovered/Resolved]
  - Enuresis [Unknown]
  - Inappropriate schedule of drug administration [Unknown]
  - Cough [Recovered/Resolved]
  - Tooth abscess [Unknown]
  - Depressed level of consciousness [Unknown]
  - Herpes ophthalmic [Unknown]
  - Night sweats [Recovered/Resolved]
  - Inappropriate schedule of drug administration [Unknown]
  - Chest pain [Recovered/Resolved]
  - Breath sounds abnormal [Recovered/Resolved]
  - Hyperhidrosis [Recovered/Resolved]
  - Head discomfort [Recovered/Resolved]
  - Dental implantation [Recovered/Resolved]
  - Tension [Unknown]
  - Hypoaesthesia [Recovered/Resolved]
  - Sleep paralysis [Recovered/Resolved]
  - Bronchitis [Recovered/Resolved]
  - Abnormal dreams [Recovered/Resolved]

NARRATIVE: CASE EVENT DATE: 20070302
